FAERS Safety Report 9315228 (Version 3)
Quarter: 2014Q3

REPORT INFORMATION
  Report Type: Spontaneous
  Country: GB (occurrence: GB)
  Receive Date: 20130529
  Receipt Date: 20140905
  Transmission Date: 20150326
  Serious: Yes (Other)
  Sender: FDA-Public Use
  Company Number: GB-WATSON-2012-15912

PATIENT
  Age: 52 Year
  Sex: Female

DRUGS (7)
  1. CHLORHEXIDINE [Concomitant]
     Active Substance: CHLORHEXIDINE
     Indication: PRODUCT USED FOR UNKNOWN INDICATION
     Dosage: UNK UNK, UNKNOWN
     Route: 048
  2. ZAPONEX [Suspect]
     Active Substance: CLOZAPINE
     Indication: SCHIZOPHRENIA, PARANOID TYPE
     Dosage: 175 MG, DAILY
     Route: 048
     Dates: start: 20110921
  3. AMISULPRIDE (UNKNOWN) [Suspect]
     Active Substance: AMISULPRIDE
     Indication: SCHIZOPHRENIA, PARANOID TYPE
     Dosage: 300 MG, BID
     Route: 065
     Dates: start: 201106
  4. CLEXANE [Concomitant]
     Active Substance: ENOXAPARIN SODIUM
     Indication: THROMBOSIS PROPHYLAXIS
     Dosage: UNK UNK, UNKNOWN
     Route: 058
     Dates: start: 201103
  5. FUROSEMIDE (UNKNOWN) [Suspect]
     Active Substance: FUROSEMIDE
     Indication: OEDEMA PERIPHERAL
     Dosage: UNK UNK, UNKNOWN
     Route: 065
  6. BISOPROLOL [Concomitant]
     Active Substance: BISOPROLOL
     Indication: SINUS TACHYCARDIA
     Dosage: 1.25 MG, UNK, TITRATED TO 5 MG
     Route: 065
     Dates: start: 201110, end: 20120808
  7. TERBINAFINE [Concomitant]
     Active Substance: TERBINAFINE
     Indication: NAIL DISORDER
     Dosage: UNK UNK, UNKNOWN
     Route: 061

REACTIONS (12)
  - Choking [Unknown]
  - Abscess limb [Unknown]
  - Oedema peripheral [Unknown]
  - Vaginal haemorrhage [Unknown]
  - Wrong drug administered [Not Recovered/Not Resolved]
  - Iatrogenic injury [Not Recovered/Not Resolved]
  - Glucose tolerance impaired [Unknown]
  - Right atrial dilatation [Unknown]
  - Hypoacusis [Not Recovered/Not Resolved]
  - Speech disorder [Recovered/Resolved]
  - Vomiting [Unknown]
  - Sinus tachycardia [Unknown]

NARRATIVE: CASE EVENT DATE: 201107
